FAERS Safety Report 19980675 (Version 1)
Quarter: 2021Q4

REPORT INFORMATION
  Report Type: Spontaneous
  Country: IE (occurrence: IE)
  Receive Date: 20211021
  Receipt Date: 20211021
  Transmission Date: 20220303
  Serious: Yes (Other)
  Sender: FDA-Public Use
  Company Number: IE-SLATE RUN PHARMACEUTICALS-21IE000721

PATIENT

DRUGS (10)
  1. VANCOMYCIN HYDROCHLORIDE [Suspect]
     Active Substance: VANCOMYCIN HYDROCHLORIDE
     Indication: Bacterial endophthalmitis
     Dosage: 2 MILLIGRAM
  2. VANCOMYCIN HYDROCHLORIDE [Suspect]
     Active Substance: VANCOMYCIN HYDROCHLORIDE
     Dosage: 1 UNK
     Route: 047
  3. CEFTAZIDIME [Suspect]
     Active Substance: CEFTAZIDIME
     Indication: Bacterial endophthalmitis
     Dosage: UNK
  4. CEFTAZIDIME [Suspect]
     Active Substance: CEFTAZIDIME
     Dosage: UNK
     Route: 047
  5. DEXAMETHASONE [Suspect]
     Active Substance: DEXAMETHASONE
     Indication: Bacterial endophthalmitis
     Dosage: 0.4 MILLIGRAM
  6. METRONIDAZOLE [Concomitant]
     Active Substance: METRONIDAZOLE
     Indication: Clostridial infection
     Dosage: 500 MILLIGRAM, TID
     Route: 042
  7. CEFTRIAXONE [Concomitant]
     Active Substance: CEFTRIAXONE
     Indication: Clostridial infection
     Dosage: 2 GRAM, QD
     Route: 042
  8. DAPTOMYCIN [Concomitant]
     Active Substance: DAPTOMYCIN
     Indication: Clostridial infection
     Dosage: 560 MILLIGRAM, QD
     Route: 042
  9. AMOXICILLIN\CLAVULANATE POTASSIUM [Concomitant]
     Active Substance: AMOXICILLIN\CLAVULANATE POTASSIUM
     Indication: Antibiotic therapy
     Route: 042
  10. CLARITHROMYCIN [Concomitant]
     Active Substance: CLARITHROMYCIN
     Indication: Antibiotic therapy
     Route: 048

REACTIONS (6)
  - Infective scleritis [Unknown]
  - Open globe injury [Unknown]
  - Colon cancer [Unknown]
  - Infective aneurysm [Unknown]
  - Off label use [Unknown]
  - Product administered at inappropriate site [Unknown]
